FAERS Safety Report 8226413-8 (Version None)
Quarter: 2012Q1

REPORT INFORMATION
  Report Type: 
  Country: None (occurrence: None)
  Receive Date: 20120321
  Receipt Date: 20120312
  Transmission Date: 20120608
  Serious: Yes (Other)
  Sender: FDA-Public Use
  Company Number: US-ASTRAZENECA-2008UW14974

PATIENT
  Age: 77 Year
  Sex: Female
  Weight: 84.4 kg

DRUGS (6)
  1. NEXIUM [Suspect]
     Route: 048
  2. VITAMIN D [Concomitant]
  3. CRESTOR [Suspect]
     Indication: BLOOD CHOLESTEROL INCREASED
     Route: 048
  4. WATER PILL [Concomitant]
  5. TAMOXIFEN CITRATE [Concomitant]
     Route: 048
  6. VESICARE [Concomitant]

REACTIONS (2)
  - MACULAR DEGENERATION [None]
  - PAIN IN EXTREMITY [None]
